FAERS Safety Report 20213606 (Version 1)
Quarter: 2021Q4

REPORT INFORMATION
  Report Type: Spontaneous
  Country: US (occurrence: US)
  Receive Date: 20211221
  Receipt Date: 20211221
  Transmission Date: 20220303
  Serious: No
  Sender: FDA-Public Use
  Company Number: US-INCYTE CORPORATION-2021IN011700

PATIENT

DRUGS (1)
  1. JAKAFI [Suspect]
     Active Substance: RUXOLITINIB
     Indication: Myelofibrosis
     Dosage: 30 MILLIGRAM, QD (10MG QAM, 20MG QPM)
     Route: 048
     Dates: start: 20190212

REACTIONS (2)
  - Splenomegaly [Not Recovered/Not Resolved]
  - Contusion [Not Recovered/Not Resolved]
